FAERS Safety Report 8367816-0 (Version None)
Quarter: 2012Q2

REPORT INFORMATION
  Report Type: 
  Country: None (occurrence: None)
  Receive Date: 20120517
  Receipt Date: 20120511
  Transmission Date: 20120825
  Serious: Yes (Other)
  Sender: FDA-Public Use
  Company Number: FR-PFIZER INC-2011SA041778

PATIENT
  Age: 46 Year
  Sex: Female

DRUGS (10)
  1. SOLU-MEDROL [Concomitant]
     Dosage: UNK
  2. XANAX [Concomitant]
     Dosage: UNK
  3. LEVOTHYROXINE SODIUM [Concomitant]
     Dosage: UNK
  4. EPIRUBICIN HYDROCHLORIDE [Suspect]
     Dosage: UNK, EVERY CYCKLE
     Route: 042
     Dates: start: 20110411, end: 20110411
  5. FLUOROURACIL [Suspect]
     Indication: PRODUCT USED FOR UNKNOWN INDICATION
     Dosage: UNK, EVERY CYCLE
     Route: 042
     Dates: start: 20110411, end: 20110411
  6. VOGALENE [Concomitant]
     Dosage: UNK
  7. CYCLOPHOSPHAMIDE [Suspect]
     Indication: PRODUCT USED FOR UNKNOWN INDICATION
     Dosage: UNK, EVERY CYCLE
     Route: 042
     Dates: start: 20110411, end: 20110411
  8. PREDNISOLONE [Concomitant]
     Dosage: UNK
     Dates: end: 20110415
  9. VALACICLOVIR [Concomitant]
     Dosage: UNK
     Dates: start: 20110411, end: 20110421
  10. ZOFRAN [Concomitant]
     Dosage: UNK

REACTIONS (1)
  - CYTOLYTIC HEPATITIS [None]
